FAERS Safety Report 7985138-4 (Version None)
Quarter: 2011Q4

REPORT INFORMATION
  Report Type: 
  Country: None (occurrence: None)
  Receive Date: 20111216
  Receipt Date: 20111207
  Transmission Date: 20120403
  Serious: Yes (Other)
  Sender: FDA-Public Use
  Company Number: PHHY2011JP108689

PATIENT
  Sex: Female

DRUGS (9)
  1. TASIGNA [Suspect]
     Dosage: 400 MG, BID
     Route: 048
     Dates: start: 20091126
  2. CARVEDILOL [Concomitant]
     Dosage: 3 MG
     Route: 048
     Dates: start: 20091112
  3. TASIGNA [Suspect]
     Indication: CHRONIC MYELOID LEUKAEMIA
     Dosage: 200 MG, BID
     Route: 048
     Dates: start: 20091112, end: 20091125
  4. ASPIRIN [Concomitant]
     Dosage: 100 MG
     Route: 048
     Dates: start: 20091112
  5. SIGMART [Concomitant]
     Dosage: 15 MG
     Route: 048
     Dates: start: 20091112
  6. MEXITIL [Concomitant]
     Dosage: 200 MG
     Route: 048
     Dates: start: 20091112
  7. LANIRAPID [Concomitant]
     Dosage: 0.1 MG
     Route: 048
     Dates: start: 20091112
  8. IRBESARTAN [Concomitant]
     Dosage: 100 MG
     Route: 048
     Dates: start: 20091112
  9. PRAVASTATIN SODIUM [Concomitant]
     Dosage: 5 MG
     Route: 048
     Dates: start: 20091112

REACTIONS (1)
  - EOSINOPHIL COUNT INCREASED [None]
